FAERS Safety Report 5392817-4 (Version None)
Quarter: 2007Q3

REPORT INFORMATION
  Report Type: 
  Country: None (occurrence: None)
  Receive Date: 20070720
  Receipt Date: 20070710
  Transmission Date: 20080115
  Serious: Yes (Life-Threatening, Hospitalization, Other)
  Sender: FDA-Public Use
  Company Number: US-PFIZER INC-2007056001

PATIENT
  Sex: Female
  Weight: 65.8 kg

DRUGS (5)
  1. ZYVOX [Suspect]
     Indication: STAPHYLOCOCCAL INFECTION
  2. INTRON A [Suspect]
     Indication: HEPATITIS C
     Dates: start: 20070101, end: 20070227
  3. PEG-INTRON [Suspect]
     Indication: HEPATITIS C
     Dosage: DAILY DOSE:120MCG
     Route: 058
     Dates: start: 20070201, end: 20070227
  4. RIBAVIRIN [Suspect]
     Indication: HEPATITIS C
     Dosage: DAILY DOSE:200MG
     Route: 048
     Dates: start: 20070101, end: 20070227
  5. RIBAVIRIN [Suspect]
     Dosage: DAILY DOSE:200MG-FREQ:FREQUENCY: BID
     Route: 048
     Dates: start: 20070214, end: 20070227

REACTIONS (6)
  - ANAEMIA [None]
  - BLOOD CREATININE INCREASED [None]
  - HAEMATOCRIT DECREASED [None]
  - HAEMORRHAGIC ASCITES [None]
  - HYPERSPLENISM [None]
  - THROMBOCYTOPENIA [None]
